FAERS Safety Report 8339310-4 (Version None)
Quarter: 2012Q2

REPORT INFORMATION
  Report Type: 
  Country: None (occurrence: None)
  Receive Date: 20120507
  Receipt Date: 20120427
  Transmission Date: 20120825
  Serious: Yes (Hospitalization)
  Sender: FDA-Public Use
  Company Number: US-BAYER-2011-075127

PATIENT
  Age: 26 Year
  Sex: Female
  Weight: 63 kg

DRUGS (5)
  1. YAZ [Suspect]
     Indication: CONTRACEPTION
     Dosage: UNK
     Dates: start: 20060101, end: 20110101
  2. YASMIN [Suspect]
     Indication: PREMENSTRUAL SYNDROME
  3. NAPROXEN (ALEVE) [Concomitant]
     Dosage: AS NEEDED
  4. YASMIN [Suspect]
     Indication: CONTRACEPTION
     Dosage: UNK
     Dates: start: 20040101, end: 20060101
  5. YAZ [Suspect]
     Indication: PREMENSTRUAL SYNDROME

REACTIONS (3)
  - INJURY [None]
  - PAIN [None]
  - GALLBLADDER INJURY [None]
